FAERS Safety Report 7902597-3 (Version None)
Quarter: 2011Q4

REPORT INFORMATION
  Report Type: 
  Country: None (occurrence: None)
  Receive Date: 20111108
  Receipt Date: 20111024
  Transmission Date: 20120403
  Serious: Yes (Hospitalization)
  Sender: FDA-Public Use
  Company Number: PT-WATSON-2011-17748

PATIENT
  Sex: Female

DRUGS (2)
  1. GEMCITABINE [Suspect]
     Indication: BONE SARCOMA
     Route: 065
  2. DOCETAXEL [Suspect]
     Indication: BONE SARCOMA
     Route: 065

REACTIONS (4)
  - POSTERIOR REVERSIBLE ENCEPHALOPATHY SYNDROME [None]
  - CYTOTOXIC OEDEMA [None]
  - STATUS EPILEPTICUS [None]
  - CEREBROVASCULAR SPASM [None]
